FAERS Safety Report 8065877-X (Version None)
Quarter: 2012Q1

REPORT INFORMATION
  Report Type: 
  Country: None (occurrence: None)
  Receive Date: 20120124
  Receipt Date: 20120117
  Transmission Date: 20120608
  Serious: No
  Sender: FDA-Public Use
  Company Number: US-BAYER-2012-007085

PATIENT

DRUGS (2)
  1. ALEVE (CAPLET) [Suspect]
     Indication: PAIN
  2. ALEVE (CAPLET) [Suspect]
     Indication: ULCER

REACTIONS (1)
  - NO ADVERSE EVENT [None]
